FAERS Safety Report 20907812 (Version 1)
Quarter: 2022Q2

REPORT INFORMATION
  Report Type: Spontaneous
  Country: CN (occurrence: CN)
  Receive Date: 20220602
  Receipt Date: 20220602
  Transmission Date: 20220721
  Serious: Yes (Life-Threatening, Other)
  Sender: FDA-Public Use
  Company Number: CN-PFIZER INC-202200784910

PATIENT
  Age: 34 Year
  Sex: Female
  Weight: 78 kg

DRUGS (4)
  1. METHOTREXATE [Suspect]
     Active Substance: METHOTREXATE
     Indication: Chemotherapy
     Dosage: 0.190 G, 1X/DAY
     Route: 042
     Dates: start: 20220513, end: 20220513
  2. METHOTREXATE [Suspect]
     Active Substance: METHOTREXATE
     Dosage: 0.38 G, 1X/DAY
     Route: 042
     Dates: start: 20220513, end: 20220513
  3. METHYLPREDNISOLONE SODIUM SUCCINATE [Suspect]
     Active Substance: METHYLPREDNISOLONE SODIUM SUCCINATE
     Dosage: 40 MG, 2X/DAY
     Route: 041
     Dates: start: 20220519
  4. ETOPOSIDE [Suspect]
     Active Substance: ETOPOSIDE
     Indication: Chemotherapy
     Dosage: 0.190 G, 1X/DAY
     Route: 041
     Dates: start: 20220513, end: 20220514

REACTIONS (19)
  - Renal impairment [Not Recovered/Not Resolved]
  - Gastrointestinal haemorrhage [Not Recovered/Not Resolved]
  - Dermatitis allergic [Not Recovered/Not Resolved]
  - Pruritus [Not Recovered/Not Resolved]
  - White blood cell count decreased [Not Recovered/Not Resolved]
  - Mouth ulceration [Not Recovered/Not Resolved]
  - Pyrexia [Not Recovered/Not Resolved]
  - Vomiting [Not Recovered/Not Resolved]
  - Neutrophil count decreased [Not Recovered/Not Resolved]
  - Hepatic function abnormal [Not Recovered/Not Resolved]
  - Erythema [Unknown]
  - Nausea [Unknown]
  - Skin warm [Unknown]
  - Musculoskeletal pain [Unknown]
  - Oral pain [Unknown]
  - Lip erosion [Unknown]
  - Ear disorder [Unknown]
  - Dysphagia [Unknown]
  - Haematochezia [Unknown]

NARRATIVE: CASE EVENT DATE: 20220517
